FAERS Safety Report 12976188 (Version 1)
Quarter: 2016Q4

REPORT INFORMATION
  Report Type: Report from Study
  Country: US (occurrence: US)
  Receive Date: 20161126
  Receipt Date: 20161126
  Transmission Date: 20170207
  Serious: Yes (Death, Hospitalization, Other)
  Sender: FDA-Public Use
  Company Number: US-BRISTOL-MYERS SQUIBB COMPANY-BMS-2016-083628

PATIENT
  Age: 69 Year
  Sex: Female
  Weight: 67.4 kg

DRUGS (7)
  1. NIVOLUMAB [Suspect]
     Active Substance: NIVOLUMAB
     Indication: NON-SMALL CELL LUNG CANCER
     Dosage: UNK
     Route: 065
     Dates: start: 20161024
  2. PEMETREXED DISODIUM [Suspect]
     Active Substance: PEMETREXED DISODIUM
     Indication: PRODUCT USED FOR UNKNOWN INDICATION
     Dosage: 1 DF = 885 UNITS NOS
     Route: 065
     Dates: start: 20160920, end: 20160920
  3. LEVAQUIN [Concomitant]
     Active Substance: LEVOFLOXACIN
     Indication: URINARY TRACT INFECTION
     Route: 065
  4. PEMETREXED DISODIUM [Suspect]
     Active Substance: PEMETREXED DISODIUM
     Indication: PRODUCT USED FOR UNKNOWN INDICATION
     Dosage: 1 DF = 885 UNITS NOS
     Route: 065
     Dates: start: 20160830, end: 20160830
  5. PEMETREXED DISODIUM [Suspect]
     Active Substance: PEMETREXED DISODIUM
     Indication: NON-SMALL CELL LUNG CANCER
     Dosage: 1 DF = 885 UNITS NOS
     Route: 065
     Dates: start: 20160809, end: 20160809
  6. OXYGEN. [Concomitant]
     Active Substance: OXYGEN
     Indication: HYPOXIA
     Dosage: 2 L, UNK
     Route: 050
     Dates: start: 20161007
  7. LEVAQUIN [Concomitant]
     Active Substance: LEVOFLOXACIN
     Indication: LUNG INFECTION
     Dosage: 750 MG, UNK
     Route: 048
     Dates: start: 20160926

REACTIONS (3)
  - Malignant neoplasm progression [Fatal]
  - Atrial fibrillation [Recovered/Resolved]
  - Syncope [Recovered/Resolved]

NARRATIVE: CASE EVENT DATE: 20161002
